FAERS Safety Report 10173017 (Version 2)
Quarter: 2014Q3

REPORT INFORMATION
  Report Type: Report from Study
  Country: CH (occurrence: CH)
  Receive Date: 20140515
  Receipt Date: 20140806
  Transmission Date: 20150326
  Serious: Yes (Hospitalization)
  Sender: FDA-Public Use
  Company Number: PHHY2014CH056720

PATIENT
  Age: 47 Year
  Sex: Male
  Weight: 95 kg

DRUGS (3)
  1. LDK378 [Suspect]
     Active Substance: CERITINIB
     Dosage: UNK UKN, UNK
     Dates: end: 20140602
  2. LDK378 [Suspect]
     Active Substance: CERITINIB
     Indication: NON-SMALL CELL LUNG CANCER
     Dosage: 600 MG, (150 MG X 4), DAILY
     Route: 048
     Dates: start: 20140320
  3. LDK378 [Suspect]
     Active Substance: CERITINIB
     Dosage: UNK UKN, UNK
     Dates: start: 20140330, end: 20140508

REACTIONS (5)
  - Muscle spasms [Recovered/Resolved]
  - Diarrhoea [Unknown]
  - Nausea [Not Recovered/Not Resolved]
  - Electrolyte imbalance [Unknown]
  - Dehydration [Unknown]

NARRATIVE: CASE EVENT DATE: 20140330
